FAERS Safety Report 12266512 (Version 1)
Quarter: 2016Q2

REPORT INFORMATION
  Report Type: Spontaneous
  Country: US (occurrence: None)
  Receive Date: 20160413
  Receipt Date: 20160413
  Transmission Date: 20160815
  Serious: No
  Sender: FDA-Public Use
  Company Number: None

PATIENT
  Sex: Male

DRUGS (3)
  1. GLIPIZIDE. [Suspect]
     Active Substance: GLIPIZIDE
  2. TOUJEO [Suspect]
     Active Substance: INSULIN GLARGINE
  3. METFORMIN [Suspect]
     Active Substance: METFORMIN HYDROCHLORIDE

REACTIONS (9)
  - Spinal fracture [None]
  - Bone disorder [None]
  - Arthropathy [None]
  - Blood glucose increased [None]
  - Back disorder [None]
  - Spinal disorder [None]
  - Back pain [None]
  - Weight decreased [None]
  - Gait disturbance [None]
